FAERS Safety Report 4320851-1 (Version None)
Quarter: 2004Q1

REPORT INFORMATION
  Report Type: 
  Country: None (occurrence: None)
  Receive Date: 20040318
  Receipt Date: 20040308
  Transmission Date: 20041129
  Serious: Yes (Death)
  Sender: FDA-Public Use
  Company Number: HQWYE632108MAR04

PATIENT
  Age: 78 Year
  Sex: Male

DRUGS (1)
  1. ANCARON (AMIODARONE, TABLET) [Suspect]
     Indication: VENTRICULAR TACHYCARDIA
     Dosage: ORAL
     Route: 048
     Dates: start: 20020101, end: 20040101

REACTIONS (3)
  - INTERSTITIAL LUNG DISEASE [None]
  - LUNG ABSCESS [None]
  - PNEUMOTHORAX [None]
